FAERS Safety Report 7593812-7 (Version None)
Quarter: 2011Q3

REPORT INFORMATION
  Report Type: 
  Country: None (occurrence: None)
  Receive Date: 20110706
  Receipt Date: 20110624
  Transmission Date: 20111222
  Serious: Yes (Other)
  Sender: FDA-Public Use
  Company Number: PHHY2010US46166

PATIENT
  Sex: Female

DRUGS (7)
  1. LEVOTHROID [Concomitant]
     Dosage: 75 UG, UNK
     Route: 048
  2. AFINITOR [Suspect]
     Dosage: 5 MG, UNK
     Route: 048
     Dates: start: 20100623, end: 20101101
  3. AFINITOR [Suspect]
     Dosage: 5 MG, DAILY
     Route: 048
     Dates: start: 20110103, end: 20110609
  4. AFINITOR [Suspect]
     Dosage: 10 MG, DAILY
     Route: 048
     Dates: start: 20110609
  5. AFINITOR [Suspect]
     Indication: NEOPLASM MALIGNANT
     Dosage: 10 MG, QD
     Route: 048
     Dates: start: 20100607, end: 20101016
  6. COZAAR [Concomitant]
     Dosage: 2.5 MG, DAILY
     Route: 048
  7. ZYPREXA [Concomitant]
     Dosage: 2.5 MG, QHS
     Route: 048

REACTIONS (14)
  - BRONCHITIS [None]
  - PNEUMONIA [None]
  - BLOOD PRESSURE INCREASED [None]
  - LUNG INFILTRATION [None]
  - NEOPLASM MALIGNANT [None]
  - OROPHARYNGEAL PAIN [None]
  - OEDEMA PERIPHERAL [None]
  - INGROWING NAIL [None]
  - COUGH [None]
  - NAUSEA [None]
  - HAEMORRHAGE [None]
  - LOCALISED INFECTION [None]
  - FATIGUE [None]
  - INFLAMMATION [None]
